FAERS Safety Report 19472729 (Version 1)
Quarter: 2021Q2

REPORT INFORMATION
  Report Type: Spontaneous
  Country: GR (occurrence: GR)
  Receive Date: 20210629
  Receipt Date: 20210629
  Transmission Date: 20210717
  Serious: Yes (Hospitalization)
  Sender: FDA-Public Use
  Company Number: GR-MYLANLABS-2021M1037789

PATIENT
  Age: 36 Year
  Sex: Male

DRUGS (5)
  1. VANCOMYCIN [Suspect]
     Active Substance: VANCOMYCIN
     Indication: PEPTOSTREPTOCOCCUS INFECTION
     Dosage: UNK
  2. AMPICILLIN AND SULBACTAM [Suspect]
     Active Substance: AMPICILLIN SODIUM\SULBACTAM SODIUM
     Indication: PEPTOSTREPTOCOCCUS INFECTION
     Dosage: UNK
  3. ACYCLOVIR                          /00587301/ [Suspect]
     Active Substance: ACYCLOVIR
     Indication: PEPTOSTREPTOCOCCUS INFECTION
     Dosage: UNK
  4. DEXAMETHASONE. [Suspect]
     Active Substance: DEXAMETHASONE
     Indication: PEPTOSTREPTOCOCCUS INFECTION
     Dosage: UNK
  5. CEFTRIAXONE. [Suspect]
     Active Substance: CEFTRIAXONE
     Indication: PEPTOSTREPTOCOCCUS INFECTION
     Dosage: UNK

REACTIONS (1)
  - Drug ineffective [Recovered/Resolved]
